FAERS Safety Report 11391371 (Version 1)
Quarter: 2015Q3

REPORT INFORMATION
  Report Type: Spontaneous
  Country: US (occurrence: None)
  Receive Date: 20150814
  Receipt Date: 20150814
  Transmission Date: 20151125
  Serious: Yes (Other)
  Sender: FDA-Public Use
  Company Number: None

PATIENT
  Age: 27 Year
  Sex: Male
  Weight: 92.99 kg

DRUGS (3)
  1. VEREGEN [Suspect]
     Active Substance: SINECATECHINS
     Indication: MOLLUSCUM CONTAGIOSUM
     Dosage: APPLIED TO A SURFACE, USUALLY THE SKIN
     Dates: start: 20150420, end: 20150622
  2. ALLEGRA-D [Concomitant]
     Active Substance: FEXOFENADINE\PSEUDOEPHEDRINE
  3. ZYRTEC [Concomitant]
     Active Substance: CETIRIZINE HYDROCHLORIDE

REACTIONS (4)
  - Application site pruritus [None]
  - Rash generalised [None]
  - Rash erythematous [None]
  - Application site rash [None]

NARRATIVE: CASE EVENT DATE: 20150615
